FAERS Safety Report 5596051-4 (Version None)
Quarter: 2007Q4

REPORT INFORMATION
  Report Type: 
  Country: None (occurrence: None)
  Receive Date: 20071218
  Receipt Date: 20070410
  Transmission Date: 20080405
  Serious: Yes (Hospitalization, Other)
  Sender: FDA-Public Use
  Company Number: 2006117190

PATIENT
  Age: 67 Year
  Sex: Male
  Weight: 77.1 kg

DRUGS (5)
  1. BEXTRA [Suspect]
     Indication: ARTHRITIS
     Dosage: 20 MG, ORAL
     Route: 048
     Dates: start: 20040514
  2. BEXTRA [Suspect]
     Indication: PAIN
     Dosage: 20 MG, ORAL
     Route: 048
     Dates: start: 20040514
  3. VIOXX [Suspect]
     Indication: BACK PAIN
     Dosage: 50 MG (50 MG, 1 IN 1 D), ORAL
     Route: 048
     Dates: start: 19990316
  4. VIOXX [Suspect]
     Indication: CARPAL TUNNEL SYNDROME
     Dosage: 50 MG (50 MG, 1 IN 1 D), ORAL
     Route: 048
     Dates: start: 19990316
  5. VIOXX [Suspect]
     Indication: OSTEOARTHRITIS
     Dosage: 50 MG (50 MG, 1 IN 1 D), ORAL
     Route: 048
     Dates: start: 19990316

REACTIONS (1)
  - MYOCARDIAL INFARCTION [None]
